FAERS Safety Report 9413815 (Version 2)
Quarter: 2013Q3

REPORT INFORMATION
  Report Type: Report from Study
  Country: JP (occurrence: JP)
  Receive Date: 20130723
  Receipt Date: 20130805
  Transmission Date: 20140515
  Serious: Yes (Hospitalization, Other)
  Sender: FDA-Public Use
  Company Number: JP-NOVOPROD-383174

PATIENT
  Age: 56 Year
  Sex: Male
  Weight: 69 kg

DRUGS (7)
  1. NORDITROPIN FLEXPRO [Suspect]
     Indication: GROWTH HORMONE DEFICIENCY
     Dosage: 0.20 MG, QD
     Route: 058
     Dates: start: 20100423, end: 20120918
  2. NORDITROPIN FLEXPRO [Suspect]
     Dosage: UNKNOWN
     Route: 058
     Dates: start: 20130125
  3. LEDERCORT                          /00031901/ [Concomitant]
     Indication: BLOOD CORTICOTROPHIN ABNORMAL
     Dosage: 4 MG, QD
     Route: 048
     Dates: end: 20120918
  4. THYRADIN S [Concomitant]
     Indication: BLOOD THYROID STIMULATING HORMONE DECREASED
     Dosage: 50 UG, QD
     Route: 048
  5. DECADRON                           /00016001/ [Concomitant]
     Indication: BLOOD CORTICOTROPHIN ABNORMAL
     Dosage: 0.25 MG, QD
     Route: 048
     Dates: start: 20120918
  6. LIVALO [Concomitant]
     Indication: HYPERLIPIDAEMIA
     Dosage: 1-2MG/DAY
     Route: 048
     Dates: start: 20100218, end: 20120918
  7. ZETIA [Concomitant]
     Indication: HYPERLIPIDAEMIA
     Dosage: 10 MG, QD
     Route: 048
     Dates: start: 20130125

REACTIONS (1)
  - Rathke^s cleft cyst [Recovering/Resolving]
